FAERS Safety Report 16263910 (Version 1)
Quarter: 2019Q2

REPORT INFORMATION
  Report Type: Spontaneous
  Country: US (occurrence: US)
  Receive Date: 20190502
  Receipt Date: 20190502
  Transmission Date: 20190711
  Serious: No
  Sender: FDA-Public Use
  Company Number: US-BION-007891

PATIENT
  Age: 70 Year
  Sex: Male

DRUGS (1)
  1. DOFETILIDE CAPSULE 500 MCG BIONPHARMA [Suspect]
     Active Substance: DOFETILIDE
     Indication: ATRIAL FIBRILLATION
     Dosage: STRENGTH: 500 MCG?BY MOUTH?3 MONTH SUPPLY (COUNT SIZE: 180)?TAKING FOR 3-4 YEARS
     Route: 048

REACTIONS (1)
  - Product use complaint [Unknown]
